FAERS Safety Report 6380220-X (Version None)
Quarter: 2009Q3

REPORT INFORMATION
  Report Type: 
  Country: None (occurrence: None)
  Receive Date: 20090923
  Receipt Date: 20090914
  Transmission Date: 20100115
  Serious: Yes (Hospitalization)
  Sender: FDA-Public Use
  Company Number: WAES 0909USA02334

PATIENT
  Age: 73 Year
  Sex: Female

DRUGS (5)
  1. HYZAAR [Suspect]
     Indication: HYPERTENSION
     Dosage: 1 DOSE/DAILY, PO
     Route: 048
     Dates: start: 20070827, end: 20071217
  2. LANSOPRAZOLE [Suspect]
     Dosage: 15 MG/BID, PO
     Route: 048
     Dates: start: 20061102, end: 20071217
  3. TAB GANATON (ITOPRIDE HYDROCHLORIDE) [Suspect]
     Dosage: 50 MG/DAILY, PO
     Route: 048
     Dates: start: 20061102, end: 20071217
  4. AMLODIPINE BESYLATE [Suspect]
     Indication: HYPERTENSION
     Dosage: 2.5 MG/DAILY, PO
     Route: 048
     Dates: start: 20070402, end: 20071217
  5. DIOVAN [Concomitant]

REACTIONS (1)
  - STRESS CARDIOMYOPATHY [None]
